FAERS Safety Report 22037745 (Version 1)
Quarter: 2023Q1

REPORT INFORMATION
  Report Type: Other
  Country: JP (occurrence: None)
  Receive Date: 20230227
  Receipt Date: 20230227
  Transmission Date: 20230418
  Serious: Yes (Other)
  Sender: FDA-Public Use
  Company Number: JP-ROCHE-3290404

PATIENT
  Age: 49 Year
  Sex: Male

DRUGS (8)
  1. BEVACIZUMAB [Suspect]
     Active Substance: BEVACIZUMAB
     Indication: Non-small cell lung cancer metastatic
     Route: 065
  2. CARBOPLATIN [Suspect]
     Active Substance: CARBOPLATIN
     Indication: Non-small cell lung cancer metastatic
     Route: 065
  3. PEMETREXED [Suspect]
     Active Substance: PEMETREXED
     Indication: Non-small cell lung cancer metastatic
     Route: 065
  4. HYDROCORTISONE [Concomitant]
     Active Substance: HYDROCORTISONE
  5. HYDROCORTISONE [Concomitant]
     Active Substance: HYDROCORTISONE
  6. NIVOLUMAB [Concomitant]
     Active Substance: NIVOLUMAB
  7. IPILIMUMAB [Concomitant]
     Active Substance: IPILIMUMAB
  8. DOCETAXEL [Concomitant]
     Active Substance: DOCETAXEL

REACTIONS (3)
  - Metastasis [Unknown]
  - Disease progression [Unknown]
  - Malaise [Unknown]
